FAERS Safety Report 6581365-1 (Version None)
Quarter: 2010Q1

REPORT INFORMATION
  Report Type: 
  Country: None (occurrence: None)
  Receive Date: 20100215
  Receipt Date: 20100203
  Transmission Date: 20100710
  Serious: Yes (Other)
  Sender: FDA-Public Use
  Company Number: BR-JNJFOC-20100204549

PATIENT
  Age: 44 Year
  Sex: Female
  Weight: 80 kg

DRUGS (2)
  1. TYLEX [Suspect]
     Indication: ANALGESIC THERAPY
     Dosage: ACETAMINOPHEN 500 MG AND CODIENE PHOSPHATE 30 MG
     Route: 065
  2. CARBOLITHIUM [Concomitant]
     Indication: BIPOLAR DISORDER
     Route: 065

REACTIONS (2)
  - HALLUCINATION [None]
  - HEADACHE [None]
